FAERS Safety Report 15570848 (Version 1)
Quarter: 2018Q4

REPORT INFORMATION
  Report Type: Spontaneous
  Country: US (occurrence: US)
  Receive Date: 20181031
  Receipt Date: 20181031
  Transmission Date: 20190205
  Serious: No
  Sender: FDA-Public Use
  Company Number: US-MYLANLABS-2018M1077220

PATIENT
  Sex: Female
  Weight: 59 kg

DRUGS (1)
  1. ESTRADIOL. [Suspect]
     Active Substance: ESTRADIOL
     Indication: IN VITRO FERTILISATION
     Dosage: UNK
     Route: 062
     Dates: start: 20180924, end: 20181010

REACTIONS (3)
  - Blood oestrogen decreased [Unknown]
  - Endometrial hypoplasia [Unknown]
  - Off label use [Unknown]

NARRATIVE: CASE EVENT DATE: 2018
